FAERS Safety Report 20628127 (Version 1)
Quarter: 2022Q1

REPORT INFORMATION
  Report Type: Spontaneous
  Country: CN (occurrence: CN)
  Receive Date: 20220323
  Receipt Date: 20220323
  Transmission Date: 20220423
  Serious: Yes (Hospitalization, Other)
  Sender: FDA-Public Use
  Company Number: CN-ELI_LILLY_AND_COMPANY-CN202203006513

PATIENT
  Age: 51 Year
  Sex: Female
  Weight: 49 kg

DRUGS (1)
  1. ZYPREXA [Suspect]
     Active Substance: OLANZAPINE
     Indication: Schizophrenia
     Dosage: 15 MG, DAILY
     Route: 048
     Dates: start: 20220107, end: 20220311

REACTIONS (4)
  - Disturbance in social behaviour [Recovered/Resolved]
  - Language disorder [Recovered/Resolved]
  - Self-injurious ideation [Recovered/Resolved]
  - Blood triglycerides increased [Recovered/Resolved]

NARRATIVE: CASE EVENT DATE: 20220210
